FAERS Safety Report 25461925 (Version 1)
Quarter: 2025Q2

REPORT INFORMATION
  Report Type: Spontaneous
  Country: US (occurrence: None)
  Receive Date: 20250619
  Receipt Date: 20250619
  Transmission Date: 20250717
  Serious: Yes (Death)
  Sender: FDA-CTU
  Company Number: None

PATIENT
  Age: 36 Year
  Sex: Male
  Weight: 60.3 kg

DRUGS (3)
  1. CEFTRIAXONE SODIUM [Suspect]
     Active Substance: CEFTRIAXONE SODIUM
     Indication: Urinary tract infection
     Route: 041
     Dates: start: 20250109, end: 20250109
  2. MORPHINE [Suspect]
     Active Substance: MORPHINE
  3. KETOROLAC [Suspect]
     Active Substance: KETOROLAC TROMETHAMINE

REACTIONS (4)
  - Respiratory arrest [None]
  - Pulse absent [None]
  - Asthenia [None]
  - Oedema [None]

NARRATIVE: CASE EVENT DATE: 20250109
